FAERS Safety Report 9317609 (Version 1)
Quarter: 2013Q2

REPORT INFORMATION
  Report Type: Spontaneous
  Country: US (occurrence: US)
  Receive Date: 20130530
  Receipt Date: 20130530
  Transmission Date: 20140414
  Serious: No
  Sender: FDA-Public Use
  Company Number: US-GLAXOSMITHKLINE-A0974199A

PATIENT
  Age: 74 Year
  Sex: Female

DRUGS (12)
  1. VENTOLIN [Suspect]
     Indication: SINUS DISORDER
     Dosage: 1PUFF SINGLE DOSE
     Route: 055
     Dates: start: 20120417, end: 20120417
  2. POTASSIUM [Concomitant]
  3. NORVASC [Concomitant]
  4. COZAAR [Concomitant]
  5. ALDOMET [Concomitant]
  6. LASIX [Concomitant]
  7. LEVOTHROID [Concomitant]
  8. PRILOSEC [Concomitant]
  9. PRAVACHOL [Concomitant]
  10. VITAMIN D [Concomitant]
  11. ESTRACE [Concomitant]
  12. BISOPROLOL [Concomitant]

REACTIONS (2)
  - Dizziness [Recovered/Resolved]
  - Malaise [Unknown]
